FAERS Safety Report 5597605-1 (Version None)
Quarter: 2008Q1

REPORT INFORMATION
  Report Type: 
  Country: None (occurrence: None)
  Receive Date: 20080121
  Receipt Date: 20080110
  Transmission Date: 20080703
  Serious: Yes (Hospitalization)
  Sender: FDA-Public Use
  Company Number: B0504064A

PATIENT
  Age: 86 Year
  Sex: Male

DRUGS (9)
  1. ARIXTRA [Suspect]
     Indication: PULMONARY EMBOLISM
     Dosage: 7.5MG PER DAY
     Route: 058
     Dates: start: 20070507, end: 20070511
  2. SERETIDE [Concomitant]
     Indication: ASTHMA
  3. TEGRETOL [Concomitant]
  4. SPIRIVA [Concomitant]
  5. ASPEGIC 1000 [Concomitant]
  6. TRIATEC [Concomitant]
     Dates: end: 20070511
  7. TAREG [Concomitant]
     Dates: end: 20070511
  8. ELISOR [Concomitant]
  9. LYRICA [Concomitant]

REACTIONS (3)
  - CIRCULATORY COLLAPSE [None]
  - HAEMOGLOBIN DECREASED [None]
  - MUSCLE HAEMORRHAGE [None]
